FAERS Safety Report 10059777 (Version 1)
Quarter: 2014Q2

REPORT INFORMATION
  Report Type: Spontaneous
  Country: US (occurrence: US)
  Receive Date: 20140404
  Receipt Date: 20140404
  Transmission Date: 20141212
  Serious: Yes (Hospitalization)
  Sender: FDA-Public Use
  Company Number: US-ACTELION-A-NJ2014-97022

PATIENT
  Age: 30 Year
  Sex: Female

DRUGS (3)
  1. TRACLEER [Suspect]
     Indication: COR PULMONALE CHRONIC
     Route: 048
  2. REMODULIN [Suspect]
     Dosage: 93 NG/KG, PER MIN
     Route: 058
     Dates: start: 20121011
  3. RIOCIGUAT [Concomitant]
     Dosage: 2 MG, TID

REACTIONS (1)
  - Sickle cell anaemia with crisis [Unknown]
